FAERS Safety Report 6002198-0 (Version None)
Quarter: 2008Q4

REPORT INFORMATION
  Report Type: 
  Country: None (occurrence: None)
  Receive Date: 20081212
  Receipt Date: 20081202
  Transmission Date: 20090506
  Serious: Yes (Death)
  Sender: FDA-Public Use
  Company Number: GXKR2008US11518

PATIENT
  Age: 56 Year
  Sex: Female

DRUGS (9)
  1. HYDROXYCHLOROQUINE SULFATE [Suspect]
     Dosage: 200 MG,BID
  2. PREDNISONE [Concomitant]
  3. CLONAZEPAM [Concomitant]
  4. FUROSEMIDE [Concomitant]
  5. TRAMADOL HCL [Concomitant]
  6. CITALOPRAM HYDROBROMIDE [Concomitant]
  7. RISODRONATE SODIUM [Concomitant]
  8. SPIRONOLACTONE [Concomitant]
  9. PILOCARPINE [Concomitant]

REACTIONS (13)
  - ASTHENIA [None]
  - BILE DUCT OBSTRUCTION [None]
  - CHEST PAIN [None]
  - CHOLELITHIASIS [None]
  - DYSPNOEA [None]
  - ECCHYMOSIS [None]
  - HYPOREFLEXIA [None]
  - MUSCULAR WEAKNESS [None]
  - MYOPATHY TOXIC [None]
  - RESPIRATORY DISTRESS [None]
  - SEPSIS [None]
  - TACHYPNOEA [None]
  - VITAL CAPACITY DECREASED [None]
